FAERS Safety Report 17035316 (Version 1)
Quarter: 2019Q4

REPORT INFORMATION
  Report Type: Report from Study
  Country: US (occurrence: US)
  Receive Date: 20191115
  Receipt Date: 20191115
  Transmission Date: 20200122
  Serious: Yes (Other)
  Sender: FDA-Public Use
  Company Number: US-ACADIA PHARMACEUTICALS INC.-ACA-2019-014651

PATIENT
  Age: 77 Year
  Sex: Male
  Weight: 91 kg

DRUGS (3)
  1. DONEPEZIL. [Concomitant]
     Active Substance: DONEPEZIL
     Indication: PRODUCT USED FOR UNKNOWN INDICATION
  2. NUPLAZID [Suspect]
     Active Substance: PIMAVANSERIN TARTRATE
     Indication: HALLUCINATION
     Dosage: 34 MG, QD
     Route: 048
     Dates: start: 201910, end: 201910
  3. NUPLAZID [Suspect]
     Active Substance: PIMAVANSERIN TARTRATE
     Indication: DEMENTIA ALZHEIMER^S TYPE

REACTIONS (7)
  - Drooling [Recovered/Resolved]
  - Confusional state [Recovered/Resolved]
  - Dyspnoea [Recovered/Resolved]
  - Salivary hypersecretion [Recovered/Resolved]
  - Feeling abnormal [Recovered/Resolved]
  - Choking [Recovered/Resolved]
  - Off label use [Unknown]

NARRATIVE: CASE EVENT DATE: 201910
